FAERS Safety Report 8245150-7 (Version None)
Quarter: 2012Q1

REPORT INFORMATION
  Report Type: 
  Country: None (occurrence: None)
  Receive Date: 20120329
  Receipt Date: 20120322
  Transmission Date: 20120608
  Serious: Yes (Other)
  Sender: FDA-Public Use
  Company Number: JP-VERTEX PHARMACEUTICALS INC.-AE-2012-004426

PATIENT
  Age: 8 Decade
  Sex: Male

DRUGS (3)
  1. PEGINTERFERON [Concomitant]
  2. REBETOL [Concomitant]
  3. TELAVIC (TELAPREVIR) [Suspect]
     Route: 048
     Dates: start: 20120301

REACTIONS (1)
  - RENAL FAILURE ACUTE [None]
